FAERS Safety Report 5190640-7 (Version None)
Quarter: 2006Q4

REPORT INFORMATION
  Report Type: 
  Country: None (occurrence: None)
  Receive Date: 20061222
  Receipt Date: 20061020
  Transmission Date: 20070319
  Serious: No
  Sender: FDA-Public Use
  Company Number: US-BRISTOL-MYERS SQUIBB COMPANY-13548730

PATIENT
  Age: 50 Year
  Sex: Female
  Weight: 70 kg

DRUGS (9)
  1. ORENCIA [Suspect]
     Indication: RHEUMATOID ARTHRITIS
     Route: 042
  2. CYMBALTA [Concomitant]
  3. PREDNISONE TAB [Concomitant]
  4. ALLEGRA [Concomitant]
  5. POTASSIUM ACETATE [Concomitant]
  6. PREMARIN [Concomitant]
  7. HYDROCHLOROTHIAZIDE [Concomitant]
  8. IBUPROFEN [Concomitant]
  9. PLAQUENIL [Concomitant]

REACTIONS (3)
  - DIZZINESS [None]
  - HEADACHE [None]
  - STARING [None]
